FAERS Safety Report 18933426 (Version 1)
Quarter: 2021Q1

REPORT INFORMATION
  Report Type: Report from Study
  Country: US (occurrence: US)
  Receive Date: 20210224
  Receipt Date: 20210224
  Transmission Date: 20210420
  Serious: Yes (Hospitalization, Other)
  Sender: FDA-Public Use
  Company Number: US-MYLANLABS-2021M1011144

PATIENT
  Age: 55 Year
  Sex: Male

DRUGS (3)
  1. CARBOPLATIN. [Suspect]
     Active Substance: CARBOPLATIN
     Indication: GLIOBLASTOMA
     Dosage: 4 MICROGRAM INTRACEREBRAL INFUSION IN 0.9% SALINE (TOTAL VOLUME 54ML) GIVEN OVER 72 HOURS
  2. PHENYTOIN. [Suspect]
     Active Substance: PHENYTOIN
     Indication: PRODUCT USED FOR UNKNOWN INDICATION
     Route: 065
  3. SALINE                             /00075401/ [Concomitant]
     Active Substance: SODIUM CHLORIDE
     Indication: DRUG THERAPY
     Dosage: INFUSION OF CARBOPLATIN THROUGH CONVECTION ENHANCED DELIVERY IN 0.9% 54ML SALINE OVER 72 HRS.

REACTIONS (4)
  - Neutropenia [Unknown]
  - Off label use [Unknown]
  - Nausea [Unknown]
  - Simple partial seizures [Recovered/Resolved]
